FAERS Safety Report 20882729 (Version 1)
Quarter: 2022Q2

REPORT INFORMATION
  Report Type: Spontaneous
  Country: US (occurrence: None)
  Receive Date: 20220526
  Receipt Date: 20220526
  Transmission Date: 20220721
  Serious: Yes (Hospitalization)
  Sender: FDA-Public Use
  Company Number: None

PATIENT
  Age: 60 Year
  Sex: Male
  Weight: 62.6 kg

DRUGS (2)
  1. EVUSHELD [Suspect]
     Active Substance: CILGAVIMAB\TIXAGEVIMAB
     Indication: Acquired immunodeficiency syndrome
     Dosage: FREQUENCY : ONCE;?
     Route: 030
     Dates: start: 20220520, end: 20220520
  2. EVUSHELD [Suspect]
     Active Substance: CILGAVIMAB\TIXAGEVIMAB
     Indication: Immunodeficiency

REACTIONS (3)
  - Pyrexia [None]
  - Pain [None]
  - Platelet count decreased [None]

NARRATIVE: CASE EVENT DATE: 20220520
